FAERS Safety Report 6051588-9 (Version None)
Quarter: 2009Q1

REPORT INFORMATION
  Report Type: 
  Country: None (occurrence: None)
  Receive Date: 20090126
  Receipt Date: 20090115
  Transmission Date: 20090719
  Serious: Yes (Hospitalization)
  Sender: FDA-Public Use
  Company Number: US-MERCK-0804USA02857

PATIENT
  Age: 71 Year
  Sex: Female
  Weight: 77 kg

DRUGS (14)
  1. FOSAMAX [Suspect]
     Indication: OSTEOPOROSIS
     Route: 048
     Dates: start: 19940101
  2. FOSAMAX [Suspect]
     Route: 048
     Dates: start: 20020807
  3. PLAVIX [Concomitant]
     Route: 065
  4. OMEPRAZOLE [Concomitant]
     Route: 065
  5. CARDIZEM [Concomitant]
     Route: 065
  6. TOPROL-XL [Concomitant]
     Route: 065
  7. QUINAPRIL HYDROCHLORIDE [Concomitant]
     Route: 065
  8. ZOCOR [Concomitant]
     Route: 048
  9. HYDROCHLOROTHIAZIDE [Concomitant]
     Route: 065
  10. OS-CAL D [Concomitant]
     Route: 065
  11. METOPROLOL [Concomitant]
     Route: 065
  12. ATROVENT [Concomitant]
     Route: 065
  13. ALBUTEROL [Concomitant]
     Route: 065
  14. SPIRIVA [Concomitant]
     Route: 065

REACTIONS (7)
  - CARDIAC FAILURE CONGESTIVE [None]
  - DENTAL CARIES [None]
  - GINGIVAL INFECTION [None]
  - LOOSE TOOTH [None]
  - RESORPTION BONE INCREASED [None]
  - TOOTH EXTRACTION [None]
  - TOOTHACHE [None]
